FAERS Safety Report 8304043-7 (Version None)
Quarter: 2012Q2

REPORT INFORMATION
  Report Type: 
  Country: None (occurrence: None)
  Receive Date: 20120418
  Receipt Date: 20120406
  Transmission Date: 20120825
  Serious: Yes (Other)
  Sender: FDA-Public Use
  Company Number: 2012P1012197

PATIENT
  Age: 65 Year
  Sex: Male
  Weight: 89.3586 kg

DRUGS (3)
  1. WARFARIN SODIUM [Suspect]
     Indication: ATRIAL FIBRILLATION
     Dosage: 5 MG; QD; PO
     Route: 048
     Dates: start: 20111001
  2. PROPAFENONE HCL [Concomitant]
  3. PRAVASTATIN [Concomitant]

REACTIONS (3)
  - NEUTROPHIL COUNT DECREASED [None]
  - WHITE BLOOD CELL COUNT DECREASED [None]
  - PROTEIN TOTAL DECREASED [None]
